FAERS Safety Report 7367871-0 (Version None)
Quarter: 2011Q1

REPORT INFORMATION
  Report Type: 
  Country: None (occurrence: None)
  Receive Date: 20110322
  Receipt Date: 20110310
  Transmission Date: 20110831
  Serious: Yes (Hospitalization)
  Sender: FDA-Public Use
  Company Number: JP-AMGEN-JPNCT2011014851

PATIENT
  Age: 84 Year
  Sex: Male
  Weight: 64 kg

DRUGS (23)
  1. ELPLAT [Concomitant]
     Route: 041
     Dates: start: 20100921
  2. ISOVORIN [Concomitant]
     Indication: COLORECTAL CANCER
     Route: 041
     Dates: start: 20100824, end: 20100824
  3. ISOVORIN [Concomitant]
     Route: 041
     Dates: start: 20100921
  4. PANITUMUMAB [Suspect]
     Dosage: 5.63 MG/KG, Q2WK
     Route: 041
     Dates: start: 20101214, end: 20101214
  5. FLUOROURACIL [Concomitant]
     Route: 041
     Dates: start: 20100824, end: 20100824
  6. CORTICOSTEROIDS [Concomitant]
     Indication: PROPHYLAXIS
     Dosage: UNK
     Route: 065
  7. PANITUMUMAB [Suspect]
     Indication: COLORECTAL CANCER
     Dosage: 5.94 MG/KG, Q2WK
     Route: 041
     Dates: start: 20100824, end: 20100824
  8. FLUOROURACIL [Concomitant]
     Route: 040
     Dates: start: 20100921
  9. KENALOG [Concomitant]
     Dosage: UNK
     Route: 049
  10. FLUOROURACIL [Concomitant]
     Route: 041
     Dates: start: 20100921
  11. GOSHAJINKIGAN [Concomitant]
     Dosage: UNK
     Route: 048
  12. PANITUMUMAB [Suspect]
     Dosage: 5.63 MG/KG, Q2WK
     Route: 041
     Dates: start: 20101019, end: 20101019
  13. PANITUMUMAB [Suspect]
     Dosage: 5.63 MG/KG, Q2WK
     Route: 041
     Dates: start: 20101118, end: 20101118
  14. PANITUMUMAB [Suspect]
     Dosage: 5.94 MG/KG, Q2WK
     Route: 041
     Dates: start: 20100921, end: 20100921
  15. ELPLAT [Concomitant]
     Indication: COLORECTAL CANCER
     Route: 041
     Dates: start: 20100824, end: 20100824
  16. FLUOROURACIL [Concomitant]
     Indication: COLORECTAL CANCER
     Route: 040
     Dates: start: 20100824, end: 20100824
  17. METHYCOBAL [Concomitant]
     Dosage: UNK
     Route: 048
  18. URSO 250 [Concomitant]
     Dosage: UNK
     Route: 048
  19. CELECOX [Concomitant]
     Dosage: UNK
     Route: 048
  20. GUAIAZULENE [Concomitant]
     Dosage: UNK
     Route: 065
  21. PANITUMUMAB [Suspect]
     Dosage: 4.69 MG/KG, Q2WK
     Route: 041
     Dates: start: 20110111
  22. DECADRON [Concomitant]
     Dosage: UNK
     Route: 042
  23. RINDERON-VG [Concomitant]
     Dosage: UNK
     Route: 062

REACTIONS (4)
  - PARONYCHIA [None]
  - DERMATITIS ACNEIFORM [None]
  - THROMBOCYTOPENIA [None]
  - STOMATITIS [None]
